FAERS Safety Report 15609157 (Version 1)
Quarter: 2018Q4

REPORT INFORMATION
  Report Type: Spontaneous
  Country: US (occurrence: US)
  Receive Date: 20181112
  Receipt Date: 20181112
  Transmission Date: 20190205
  Serious: Yes (Other)
  Sender: FDA-Public Use
  Company Number: US-EGALET US INC-US-2018EGA000918

PATIENT
  Sex: Male

DRUGS (1)
  1. SPRIX [Suspect]
     Active Substance: KETOROLAC TROMETHAMINE
     Indication: PAIN
     Dosage: UNK
     Route: 045

REACTIONS (3)
  - Facial paralysis [Unknown]
  - Drooling [Unknown]
  - Hypoaesthesia [Unknown]
